FAERS Safety Report 19856427 (Version 1)
Quarter: 2021Q3

REPORT INFORMATION
  Report Type: Spontaneous
  Country: NL (occurrence: NL)
  Receive Date: 20210920
  Receipt Date: 20210920
  Transmission Date: 20211014
  Serious: Yes (Hospitalization)
  Sender: FDA-Public Use
  Company Number: NVSC2021NL209814

PATIENT
  Age: 49 Year
  Sex: Female
  Weight: 64 kg

DRUGS (2)
  1. OMEPRAZOLE. [Suspect]
     Active Substance: OMEPRAZOLE
     Indication: PRODUCT USED FOR UNKNOWN INDICATION
     Dosage: 20 MG
     Route: 065
     Dates: start: 20210728, end: 20210805
  2. NAPROXEN. [Suspect]
     Active Substance: NAPROXEN
     Indication: CHEST PAIN
     Dosage: 3X PER DAG 1 STUK
     Route: 065
     Dates: start: 20210728, end: 20210805

REACTIONS (5)
  - Pyrexia [Recovered/Resolved]
  - Erythema multiforme [Recovered/Resolved]
  - Myalgia [Unknown]
  - Headache [Unknown]
  - Malaise [Unknown]

NARRATIVE: CASE EVENT DATE: 20210730
